FAERS Safety Report 4664650-X (Version None)
Quarter: 2005Q2

REPORT INFORMATION
  Report Type: 
  Country: None (occurrence: None)
  Receive Date: 20050518
  Receipt Date: 20050511
  Transmission Date: 20051028
  Serious: Yes (Hospitalization)
  Sender: FDA-Public Use
  Company Number: US-ROCHE-404622

PATIENT
  Age: 59 Year
  Sex: Female
  Weight: 81.6 kg

DRUGS (9)
  1. NAPROSYN [Suspect]
     Indication: ARTHRITIS
     Route: 048
     Dates: start: 20020615, end: 20050502
  2. ZOCOR [Concomitant]
     Route: 048
  3. AVAPRO [Concomitant]
     Route: 048
  4. COREG [Concomitant]
     Route: 048
  5. XANAX [Concomitant]
     Route: 048
  6. PLAVIX [Concomitant]
     Route: 048
  7. FUROSEMIDE [Concomitant]
     Route: 048
  8. SPIRONOLACTONE [Concomitant]
     Route: 048
  9. NIASPAN [Concomitant]
     Route: 048

REACTIONS (8)
  - ASTHENIA [None]
  - DIARRHOEA [None]
  - FATIGUE [None]
  - FLATULENCE [None]
  - GASTRIC ULCER [None]
  - HAEMATEMESIS [None]
  - PYREXIA [None]
  - ULCER HAEMORRHAGE [None]
